FAERS Safety Report 9371387 (Version 1)
Quarter: 2013Q2

REPORT INFORMATION
  Report Type: Spontaneous
  Country: CO (occurrence: CO)
  Receive Date: 20130627
  Receipt Date: 20130627
  Transmission Date: 20140414
  Serious: Yes (Hospitalization)
  Sender: FDA-Public Use
  Company Number: CO-JNJFOC-20130611319

PATIENT
  Sex: Female
  Weight: 53 kg

DRUGS (2)
  1. RISPERIDONE [Suspect]
     Indication: SCHIZOAFFECTIVE DISORDER
     Route: 065
  2. LEVOTHYROXINE [Concomitant]
     Route: 048

REACTIONS (1)
  - Hospitalisation [Unknown]
